FAERS Safety Report 8478519 (Version 2)
Quarter: 2013Q2

REPORT INFORMATION
  Report Type: Spontaneous
  Country: JP (occurrence: JP)
  Receive Date: 20120327
  Receipt Date: 20130613
  Transmission Date: 20140414
  Serious: Yes (Death, Hospitalization)
  Sender: FDA-Public Use
  Company Number: JP-ROCHE-1049627

PATIENT
  Age: 80 Year
  Sex: Female

DRUGS (1)
  1. ACTEMRA [Suspect]
     Indication: RHEUMATOID ARTHRITIS
     Route: 041

REACTIONS (2)
  - Cardiac failure [Fatal]
  - Lumbar spinal stenosis [Unknown]
